FAERS Safety Report 19251016 (Version 2)
Quarter: 2022Q1

REPORT INFORMATION
  Report Type: Report from Study
  Country: ES (occurrence: ES)
  Receive Date: 20210513
  Receipt Date: 20220213
  Transmission Date: 20220423
  Serious: Yes (Other)
  Sender: FDA-Public Use
  Company Number: ES-SUN PHARMACEUTICAL INDUSTRIES LTD-2021R1-296062

PATIENT
  Age: 37 Year
  Sex: Female

DRUGS (9)
  1. TACROLIMUS [Suspect]
     Active Substance: TACROLIMUS
     Indication: Pyrexia
     Dosage: 4 MILLIGRAM, QD
     Route: 065
  2. TACROLIMUS [Suspect]
     Active Substance: TACROLIMUS
     Indication: Vomiting
  3. TACROLIMUS [Suspect]
     Active Substance: TACROLIMUS
     Indication: Dyspnoea
  4. MYCOPHENOLATE MOFETIL [Suspect]
     Active Substance: MYCOPHENOLATE MOFETIL
     Indication: Vomiting
     Dosage: 500 MILLIGRAM, BID
     Route: 065
  5. MYCOPHENOLATE MOFETIL [Suspect]
     Active Substance: MYCOPHENOLATE MOFETIL
     Indication: Dyspnoea
  6. MYCOPHENOLATE MOFETIL [Suspect]
     Active Substance: MYCOPHENOLATE MOFETIL
     Indication: Pyrexia
  7. PREDNISONE [Suspect]
     Active Substance: PREDNISONE
     Indication: Vomiting
     Dosage: 10 MILLIGRAM, QD
     Route: 065
  8. PREDNISONE [Suspect]
     Active Substance: PREDNISONE
     Indication: Pyrexia
  9. PREDNISONE [Suspect]
     Active Substance: PREDNISONE
     Indication: Dyspnoea

REACTIONS (1)
  - Pneumocystis jirovecii pneumonia [Unknown]
